FAERS Safety Report 4560582-6 (Version None)
Quarter: 2005Q1

REPORT INFORMATION
  Report Type: 
  Country: None (occurrence: None)
  Receive Date: 20050125
  Receipt Date: 20050117
  Transmission Date: 20050727
  Serious: Yes (Other)
  Sender: FDA-Public Use
  Company Number: PHRM2005FR00543

PATIENT
  Age: 45 Year
  Sex: Female

DRUGS (2)
  1. LEVOTHYROX [Concomitant]
     Indication: HYPOTHYROIDISM
  2. LESCOL [Suspect]
     Indication: HYPERCHOLESTEROLAEMIA
     Dosage: 40 MG, QD
     Route: 048
     Dates: start: 20040101

REACTIONS (1)
  - VISUAL DISTURBANCE [None]
